FAERS Safety Report 6308011-6 (Version None)
Quarter: 2009Q3

REPORT INFORMATION
  Report Type: 
  Country: None (occurrence: None)
  Receive Date: 20090813
  Receipt Date: 20090806
  Transmission Date: 20100115
  Serious: Yes (Congenital Anomaly)
  Sender: FDA-Public Use
  Company Number: A0743144A

PATIENT
  Sex: Male

DRUGS (12)
  1. PAXIL [Suspect]
     Indication: DRUG USE FOR UNKNOWN INDICATION
     Dates: start: 20050101, end: 20050301
  2. PAROXETINE HCL [Suspect]
     Indication: DRUG USE FOR UNKNOWN INDICATION
     Dosage: 20MG PER DAY
     Dates: start: 20031001, end: 20070501
  3. VITAMIN TAB [Concomitant]
  4. NEXIUM [Concomitant]
  5. PROTONIX [Concomitant]
  6. CARAFATE [Concomitant]
  7. GAVISCON [Concomitant]
  8. DEMEROL [Concomitant]
     Dates: start: 20050630
  9. PHENERGAN [Concomitant]
  10. PROCARDIA [Concomitant]
     Dates: end: 20050819
  11. AMBIEN [Concomitant]
  12. AUGMENTIN '125' [Concomitant]

REACTIONS (2)
  - CRANIOSYNOSTOSIS [None]
  - DRUG EXPOSURE DURING PREGNANCY [None]
